FAERS Safety Report 4277514-0 (Version None)
Quarter: 2004Q1

REPORT INFORMATION
  Report Type: 
  Country: None (occurrence: None)
  Receive Date: 20040122
  Receipt Date: 20031224
  Transmission Date: 20041129
  Serious: Yes (Hospitalization)
  Sender: FDA-Public Use
  Company Number: PHBS2003JP14434

PATIENT
  Age: 82 Year
  Sex: Female
  Weight: 52 kg

DRUGS (1)
  1. AREDIA [Suspect]
     Indication: HYPERCALCAEMIA
     Dosage: 30 MG, ONCE/SINGLE
     Dates: start: 20031217, end: 20031217

REACTIONS (6)
  - ALVEOLITIS ALLERGIC [None]
  - C-REACTIVE PROTEIN INCREASED [None]
  - DYSPNOEA [None]
  - FACE OEDEMA [None]
  - PNEUMONIA [None]
  - PYREXIA [None]
